FAERS Safety Report 8798775 (Version 2)
Quarter: 2015Q1

REPORT INFORMATION
  Report Type: Report from Study
  Country: US (occurrence: US)
  Receive Date: 20120920
  Receipt Date: 20150326
  Transmission Date: 20150721
  Serious: Yes (Death, Hospitalization)
  Sender: FDA-Public Use
  Company Number: US-ROCHE-1125635

PATIENT
  Sex: Female
  Weight: 68 kg

DRUGS (17)
  1. AVASTIN [Suspect]
     Active Substance: BEVACIZUMAB
     Indication: MALIGNANT PERITONEAL NEOPLASM
     Route: 042
     Dates: start: 200707
  2. OXY IR [Concomitant]
     Active Substance: OXYCODONE HYDROCHLORIDE
  3. BENADRYL [Concomitant]
     Active Substance: DIPHENHYDRAMINE HYDROCHLORIDE
     Route: 042
  4. MORPHINE [Concomitant]
     Active Substance: MORPHINE
     Route: 042
  5. TAGAMET [Concomitant]
     Active Substance: CIMETIDINE
     Route: 042
  6. COUMADIN [Concomitant]
     Active Substance: WARFARIN SODIUM
  7. ATIVAN [Concomitant]
     Active Substance: LORAZEPAM
     Indication: NAUSEA
     Route: 065
  8. LEVAQUIN [Concomitant]
     Active Substance: LEVOFLOXACIN
  9. DECADRON [Concomitant]
     Active Substance: DEXAMETHASONE
     Route: 042
  10. ATIVAN [Concomitant]
     Active Substance: LORAZEPAM
     Indication: ANXIETY
  11. TAXOL [Concomitant]
     Active Substance: PACLITAXEL
     Route: 042
  12. TAXOL [Concomitant]
     Active Substance: PACLITAXEL
     Route: 042
  13. SENOKOT [Concomitant]
     Active Substance: SENNOSIDES
  14. AVASTIN [Suspect]
     Active Substance: BEVACIZUMAB
     Route: 042
     Dates: start: 20080710
  15. DIFLUCAN [Concomitant]
     Active Substance: FLUCONAZOLE
  16. VICODIN [Concomitant]
     Active Substance: ACETAMINOPHEN\HYDROCODONE BITARTRATE
  17. PHENERGAN [Concomitant]
     Active Substance: PROMETHAZINE HYDROCHLORIDE
     Route: 065

REACTIONS (33)
  - Death [Fatal]
  - Weight decreased [Unknown]
  - Ecchymosis [Unknown]
  - Stress [Unknown]
  - Disorientation [Unknown]
  - Disease progression [Unknown]
  - Dehydration [Unknown]
  - Renal cyst [Unknown]
  - Arteriosclerosis [Unknown]
  - Oropharyngeal pain [Unknown]
  - Tongue ulceration [Unknown]
  - Cough [Unknown]
  - Lacunar infarction [Unknown]
  - Oral candidiasis [Unknown]
  - Urinary tract infection [Unknown]
  - Depression [Unknown]
  - Mucosal inflammation [Unknown]
  - Dementia [Unknown]
  - Compression fracture [Unknown]
  - Haematoma [Unknown]
  - Pulmonary embolism [Unknown]
  - Discomfort [Unknown]
  - Atelectasis [Unknown]
  - Anxiety [Unknown]
  - Flank pain [Unknown]
  - Confusional state [Unknown]
  - Off label use [Unknown]
  - Spinal osteoarthritis [Unknown]
  - Stomatitis [Unknown]
  - Fatigue [Unknown]
  - Dizziness [Unknown]
  - Failure to thrive [Unknown]
  - Waist circumference increased [Unknown]
